FAERS Safety Report 20706974 (Version 1)
Quarter: 2022Q2

REPORT INFORMATION
  Report Type: Spontaneous
  Country: US (occurrence: US)
  Receive Date: 20220413
  Receipt Date: 20220413
  Transmission Date: 20220720
  Serious: No
  Sender: FDA-Public Use
  Company Number: US-PFIZER INC-202101048901

PATIENT
  Age: 65 Year
  Sex: Male
  Weight: 95.25 kg

DRUGS (4)
  1. XELJANZ XR [Suspect]
     Active Substance: TOFACITINIB CITRATE
     Indication: Rheumatoid arthritis
     Dosage: 11 MG, DAILY
     Route: 048
     Dates: start: 202106
  2. XELJANZ XR [Suspect]
     Active Substance: TOFACITINIB CITRATE
     Indication: Osteoarthritis
  3. PREDNISONE [Concomitant]
     Active Substance: PREDNISONE
     Dosage: UNK
  4. METHOTREXATE SODIUM [Concomitant]
     Active Substance: METHOTREXATE SODIUM
     Dosage: UNK

REACTIONS (1)
  - Therapeutic product effect incomplete [Unknown]
